FAERS Safety Report 22233883 (Version 2)
Quarter: 2023Q2

REPORT INFORMATION
  Report Type: Spontaneous
  Country: US (occurrence: US)
  Receive Date: 20230420
  Receipt Date: 20230425
  Transmission Date: 20230722
  Serious: No
  Sender: FDA-Public Use
  Company Number: US-SA-SAC20230419000279

PATIENT
  Sex: Female

DRUGS (1)
  1. DUPIXENT [Suspect]
     Active Substance: DUPILUMAB
     Indication: Neurodermatitis
     Dosage: 300 MG, QOW
     Route: 058

REACTIONS (8)
  - Gastrointestinal disorder [Unknown]
  - Fatigue [Unknown]
  - Headache [Unknown]
  - Nasal congestion [Unknown]
  - Nasal crusting [Unknown]
  - Oral herpes [Unknown]
  - Condition aggravated [Unknown]
  - Therapeutic response decreased [Unknown]
